FAERS Safety Report 5726774-5 (Version None)
Quarter: 2008Q2

REPORT INFORMATION
  Report Type: 
  Country: None (occurrence: None)
  Receive Date: 20080502
  Receipt Date: 20080421
  Transmission Date: 20081010
  Serious: Yes (Hospitalization)
  Sender: FDA-Public Use
  Company Number: IT-PFIZER INC-2007106479

PATIENT
  Age: 19 Year
  Sex: Male

DRUGS (5)
  1. ZOLOFT [Suspect]
     Indication: DELIRIUM
     Route: 048
     Dates: start: 20070929, end: 20071022
  2. ZOLOFT [Interacting]
     Indication: DEPRESSION
  3. ABILIFY [Interacting]
     Indication: ACUTE PSYCHOSIS
     Route: 048
     Dates: start: 20070920, end: 20071008
  4. ABILIFY [Interacting]
     Indication: DELIRIUM
  5. ABILIFY [Interacting]
     Indication: DEPRESSION

REACTIONS (2)
  - DRUG INTERACTION [None]
  - DYSTONIA [None]
